FAERS Safety Report 5161770-0 (Version None)
Quarter: 2006Q4

REPORT INFORMATION
  Report Type: 
  Country: None (occurrence: None)
  Receive Date: 20061121
  Receipt Date: 20061110
  Transmission Date: 20070319
  Serious: Yes (Hospitalization, Other)
  Sender: FDA-Public Use
  Company Number: 2006127027

PATIENT
  Age: 37 Year
  Sex: Female

DRUGS (3)
  1. ALPRAZOLAM [Suspect]
     Indication: SLEEP DISORDER
     Dosage: 0.25 MG (0.25 MG, 1 IN 1 D), ORAL
     Route: 048
     Dates: start: 19990101
  2. TYLENOL [Concomitant]
  3. PIROXICAM [Concomitant]

REACTIONS (12)
  - ABDOMINAL HERNIA REPAIR [None]
  - DRUG DEPENDENCE [None]
  - ERYTHEMA [None]
  - HYPERSENSITIVITY [None]
  - HYSTERECTOMY [None]
  - INCISIONAL HERNIA [None]
  - MASTECTOMY [None]
  - MUSCULAR WEAKNESS [None]
  - NODULE [None]
  - PAIN [None]
  - POOR QUALITY SLEEP [None]
  - PRURITUS [None]
